FAERS Safety Report 22023512 (Version 2)
Quarter: 2023Q2

REPORT INFORMATION
  Report Type: Spontaneous
  Country: IT (occurrence: IT)
  Receive Date: 20230223
  Receipt Date: 20230425
  Transmission Date: 20230721
  Serious: Yes (Other)
  Sender: FDA-Public Use
  Company Number: None

PATIENT
  Age: 32 Year
  Sex: Female

DRUGS (11)
  1. CERTOLIZUMAB PEGOL [Suspect]
     Active Substance: CERTOLIZUMAB PEGOL
     Indication: Iridocyclitis
     Dosage: UNK
  2. ADALIMUMAB [Suspect]
     Active Substance: ADALIMUMAB
     Indication: Iridocyclitis
     Dosage: 40 MILLIGRAM, EV 2 WEEKS(QOW)
     Route: 058
     Dates: start: 202007, end: 2021
  3. SECUKINUMAB [Suspect]
     Active Substance: SECUKINUMAB
     Indication: Iridocyclitis
     Dosage: 150 MILLIGRAM, MONTHLY (QM)
  4. CYCLOSPORINE [Concomitant]
     Active Substance: CYCLOSPORINE
     Indication: Iridocyclitis
     Dosage: UNK
  5. HYDROXYCHLOROQUINE [Concomitant]
     Active Substance: HYDROXYCHLOROQUINE
     Indication: Iridocyclitis
     Dosage: UNK
  6. PREDNISONE [Concomitant]
     Active Substance: PREDNISONE
     Indication: Iridocyclitis
     Dosage: 12.5 MG EVERY 1 DAY
     Dates: start: 202007
  7. PREDNISONE [Concomitant]
     Active Substance: PREDNISONE
     Dosage: 5 MG EVERY 1.75 DAY, FOUR DAYS A WEEK
     Dates: start: 202007
  8. PREDNISONE [Concomitant]
     Active Substance: PREDNISONE
     Dosage: 6.25 MILLIGRAM, QD/ PROGRESSIVE DECREASE OF THE DOSAGE UP TO 6.25 MG/6.25 MILLIGRAM, QD
  9. PREDNISONE [Concomitant]
     Active Substance: PREDNISONE
     Dosage: 5 MG FOUR DAYS A WEEK
  10. AZATHIOPRINE [Concomitant]
     Active Substance: AZATHIOPRINE
     Indication: Iridocyclitis
     Dosage: UNK
  11. METHOTREXATE [Concomitant]
     Active Substance: METHOTREXATE
     Indication: Iridocyclitis
     Dosage: UNK

REACTIONS (7)
  - Axial spondyloarthritis [Recovering/Resolving]
  - Peripheral spondyloarthritis [Recovering/Resolving]
  - Adnexa uteri cyst [Unknown]
  - Ovarian cyst [Unknown]
  - Mental disorder [Unknown]
  - Maternal exposure before pregnancy [Unknown]
  - Drug ineffective [Unknown]

NARRATIVE: CASE EVENT DATE: 20210101
